FAERS Safety Report 7357500-4 (Version None)
Quarter: 2011Q1

REPORT INFORMATION
  Report Type: 
  Country: None (occurrence: None)
  Receive Date: 20110314
  Receipt Date: 20110314
  Transmission Date: 20110831
  Serious: No
  Sender: FDA-Public Use
  Company Number: None

PATIENT
  Age: 46 Year
  Sex: Female
  Weight: 86.1834 kg

DRUGS (1)
  1. FLUOXETINE [Suspect]
     Indication: BIPOLAR II DISORDER
     Dosage: 1 DAILY PO
     Route: 048
     Dates: start: 20110225, end: 20110310

REACTIONS (9)
  - PALPITATIONS [None]
  - FEELING ABNORMAL [None]
  - VISUAL IMPAIRMENT [None]
  - THINKING ABNORMAL [None]
  - CHEST PAIN [None]
  - ABDOMINAL PAIN UPPER [None]
  - PRODUCT QUALITY ISSUE [None]
  - FEAR [None]
  - HEART RATE INCREASED [None]
